FAERS Safety Report 7024893-7 (Version None)
Quarter: 2010Q4

REPORT INFORMATION
  Report Type: 
  Country: None (occurrence: None)
  Receive Date: 20101001
  Receipt Date: 20100928
  Transmission Date: 20110411
  Serious: Yes (Life-Threatening, Hospitalization)
  Sender: FDA-Public Use
  Company Number: GB-MERCK-1009GBR00110

PATIENT
  Age: 56 Year
  Sex: Male

DRUGS (8)
  1. ZETIA [Suspect]
     Route: 048
     Dates: end: 20100101
  2. ATORVASTATIN [Suspect]
     Indication: CEREBROVASCULAR ACCIDENT PROPHYLAXIS
     Route: 065
     Dates: end: 20100101
  3. INDAPAMIDE [Suspect]
     Indication: CEREBROVASCULAR ACCIDENT PROPHYLAXIS
     Route: 065
     Dates: end: 20100101
  4. PERINDOPRIL [Suspect]
     Indication: CEREBROVASCULAR ACCIDENT PROPHYLAXIS
     Route: 065
     Dates: end: 20100101
  5. RANITIDINE [Suspect]
     Indication: CEREBROVASCULAR ACCIDENT PROPHYLAXIS
     Route: 065
     Dates: end: 20100101
  6. ASPIRIN [Concomitant]
     Route: 048
  7. GLUCOSAMINE [Concomitant]
     Route: 048
  8. NITROGLYCERIN [Concomitant]
     Route: 060

REACTIONS (2)
  - HYPOTENSION [None]
  - STEVENS-JOHNSON SYNDROME [None]
